FAERS Safety Report 13024411 (Version 1)
Quarter: 2016Q4

REPORT INFORMATION
  Report Type: Spontaneous
  Country: CN (occurrence: CN)
  Receive Date: 20161213
  Receipt Date: 20161213
  Transmission Date: 20170207
  Serious: Yes (Hospitalization)
  Sender: FDA-Public Use
  Company Number: CN-ASTRAZENECA-2016SF30719

PATIENT
  Age: 33238 Day
  Sex: Female

DRUGS (3)
  1. TS-1 [Suspect]
     Active Substance: GIMERACIL\OTERACIL\TEGAFUR
     Indication: PANCREATIC CARCINOMA
     Route: 048
     Dates: start: 20160706, end: 20160714
  2. IRESSA [Suspect]
     Active Substance: GEFITINIB
     Indication: PANCREATIC CARCINOMA
     Route: 048
     Dates: start: 20140101, end: 20160714
  3. LENTINAN [Concomitant]
     Active Substance: LENTINAN
     Indication: PANCREATIC CARCINOMA
     Route: 041
     Dates: start: 20160706, end: 20160714

REACTIONS (4)
  - Blood pressure increased [Not Recovered/Not Resolved]
  - Language disorder [Not Recovered/Not Resolved]
  - Altered state of consciousness [Not Recovered/Not Resolved]
  - Off label use [Not Recovered/Not Resolved]

NARRATIVE: CASE EVENT DATE: 20160708
